FAERS Safety Report 7632514-5 (Version None)
Quarter: 2011Q3

REPORT INFORMATION
  Report Type: 
  Country: None (occurrence: None)
  Receive Date: 20110725
  Receipt Date: 20100928
  Transmission Date: 20111222
  Serious: Yes (Other)
  Sender: FDA-Public Use
  Company Number: US-BRISTOL-MYERS SQUIBB COMPANY-15307796

PATIENT
  Age: 75 Year
  Sex: Female

DRUGS (3)
  1. COUMADIN [Suspect]
     Route: 065
  2. LOVENOX [Suspect]
     Indication: ANTICOAGULANT THERAPY
     Dosage: TIME TO ONSET:4DAYS
     Dates: start: 20100819, end: 20100822
  3. HEPARIN SODIUM [Suspect]

REACTIONS (2)
  - ABDOMINAL WALL HAEMATOMA [None]
  - HAEMORRHAGE [None]
